FAERS Safety Report 7971057-6 (Version None)
Quarter: 2011Q4

REPORT INFORMATION
  Report Type: 
  Country: None (occurrence: None)
  Receive Date: 20111212
  Receipt Date: 20111212
  Transmission Date: 20120403
  Serious: Yes (Other)
  Sender: FDA-Public Use
  Company Number: None

PATIENT
  Age: 62 Year
  Sex: Male

DRUGS (1)
  1. IRON SUCROSE [Suspect]
     Indication: ANAEMIA
     Dosage: 200MG
     Route: 042
     Dates: start: 20110720, end: 20110721

REACTIONS (2)
  - INJECTION SITE EXTRAVASATION [None]
  - INCORRECT DRUG ADMINISTRATION RATE [None]
